FAERS Safety Report 22593814 (Version 1)
Quarter: 2023Q2

REPORT INFORMATION
  Report Type: Spontaneous
  Country: US (occurrence: US)
  Receive Date: 20230613
  Receipt Date: 20230613
  Transmission Date: 20230721
  Serious: Yes (Hospitalization, Other)
  Sender: FDA-Public Use
  Company Number: US-BRISTOL-MYERS SQUIBB COMPANY-2023-081554

PATIENT
  Age: 76 Year
  Sex: Male
  Weight: 63.5 kg

DRUGS (25)
  1. REVLIMID [Suspect]
     Active Substance: LENALIDOMIDE
     Indication: Plasma cell myeloma
     Dosage: FREQUENCY: USED AS DIRECTED?5 CAPSULES
     Route: 048
     Dates: start: 20220319, end: 20220411
  2. REVLIMID [Suspect]
     Active Substance: LENALIDOMIDE
     Dosage: FREQUENCY: USED AS DIRECTED
     Route: 048
     Dates: start: 20220411, end: 20220511
  3. REVLIMID [Suspect]
     Active Substance: LENALIDOMIDE
     Dosage: FREQUENCY: USED AS DIRECTED
     Route: 048
     Dates: start: 20220511, end: 20220607
  4. REVLIMID [Suspect]
     Active Substance: LENALIDOMIDE
     Dosage: FREQUENCY: USED AS DIRECTED
     Route: 048
     Dates: start: 20220607, end: 20220705
  5. REVLIMID [Suspect]
     Active Substance: LENALIDOMIDE
     Dosage: FREQUENCY: USED AS DIRECTED
     Route: 048
     Dates: start: 20220705, end: 20220805
  6. REVLIMID [Suspect]
     Active Substance: LENALIDOMIDE
     Dosage: FREQUENCY: USED AS DIRECTED
     Route: 048
     Dates: start: 20220805, end: 20220902
  7. REVLIMID [Suspect]
     Active Substance: LENALIDOMIDE
     Dosage: FREQUENCY: USED AS DIRECTED
     Route: 048
     Dates: start: 20220902, end: 20221004
  8. REVLIMID [Suspect]
     Active Substance: LENALIDOMIDE
     Dosage: FREQUENCY: USED AS DIRECTED
     Route: 048
     Dates: start: 20221004, end: 20221028
  9. REVLIMID [Suspect]
     Active Substance: LENALIDOMIDE
     Dosage: FREQUENCY: USED AS DIRECTED
     Route: 048
     Dates: start: 20221028, end: 20221125
  10. REVLIMID [Suspect]
     Active Substance: LENALIDOMIDE
     Dosage: FREQUENCY: USED AS DIRECTED
     Route: 048
     Dates: start: 20221125, end: 20221212
  11. REVLIMID [Suspect]
     Active Substance: LENALIDOMIDE
     Dosage: FREQUENCY: USED AS DIRECTED
     Route: 048
     Dates: start: 20221212, end: 20230105
  12. REVLIMID [Suspect]
     Active Substance: LENALIDOMIDE
     Dosage: FREQUENCY: USED AS DIRECTED
     Route: 048
     Dates: start: 20230105, end: 20230202
  13. REVLIMID [Suspect]
     Active Substance: LENALIDOMIDE
     Dosage: FREQUENCY: USED AS DIRECTED
     Route: 048
     Dates: start: 20230202, end: 20230306
  14. REVLIMID [Suspect]
     Active Substance: LENALIDOMIDE
     Route: 048
     Dates: start: 20230306, end: 20230403
  15. REVLIMID [Suspect]
     Active Substance: LENALIDOMIDE
     Dosage: FREQUENCY: USED AS DIRECTED
     Route: 048
     Dates: start: 20230403, end: 20230427
  16. REVLIMID [Suspect]
     Active Substance: LENALIDOMIDE
     Dosage: FREQUENCY: USED AS DIRECTED
     Route: 048
     Dates: start: 20230427, end: 20230608
  17. REVLIMID [Suspect]
     Active Substance: LENALIDOMIDE
     Dosage: FREQUENCY: USED AS DIRECTED
     Route: 048
     Dates: start: 20230608
  18. ALBUTEROL SULFATE [Concomitant]
     Active Substance: ALBUTEROL SULFATE
     Indication: Product used for unknown indication
     Dosage: INHALATION AE?108 (90 BA
     Dates: start: 20220322
  19. ACYCLOVIR [Concomitant]
     Active Substance: ACYCLOVIR
     Indication: Product used for unknown indication
     Route: 048
     Dates: start: 20210120
  20. BUDESONIDE [Concomitant]
     Active Substance: BUDESONIDE
     Indication: Product used for unknown indication
     Dosage: INHALATION SUSPENSION 0?0.25 MG/2?ROA: INHALATION
     Dates: start: 20220322
  21. CALCIUM ASCORBATE [Concomitant]
     Active Substance: CALCIUM ASCORBATE
     Indication: Product used for unknown indication
     Route: 048
     Dates: start: 20210120
  22. DEXAMETHASONE [Concomitant]
     Active Substance: DEXAMETHASONE
     Indication: Product used for unknown indication
     Dosage: DI W/REVLIMID NOTED
     Route: 048
     Dates: start: 20210909
  23. LEVOTHYROXINE SODIUM [Concomitant]
     Active Substance: LEVOTHYROXINE SODIUM
     Indication: Product used for unknown indication
     Route: 048
     Dates: start: 20210120
  24. PREVACID [Concomitant]
     Active Substance: LANSOPRAZOLE
     Indication: Product used for unknown indication
     Route: 048
     Dates: start: 20210120
  25. VITAMIN D NOS [Concomitant]
     Active Substance: VITAMIN D NOS
     Indication: Product used for unknown indication
     Dosage: HIGH POTENCY
     Route: 048
     Dates: start: 20210120

REACTIONS (2)
  - Pulmonary embolism [Recovering/Resolving]
  - Bronchitis viral [Recovering/Resolving]

NARRATIVE: CASE EVENT DATE: 20230501
